FAERS Safety Report 8044755-6 (Version None)
Quarter: 2012Q1

REPORT INFORMATION
  Report Type: 
  Country: None (occurrence: None)
  Receive Date: 20120113
  Receipt Date: 20120109
  Transmission Date: 20120608
  Serious: Yes (Life-Threatening, Hospitalization)
  Sender: FDA-Public Use
  Company Number: CA-ELI_LILLY_AND_COMPANY-CA201201002302

PATIENT
  Age: 59 Year
  Sex: Female

DRUGS (4)
  1. ROGAINE [Concomitant]
     Route: 061
  2. ALERTONIC [Concomitant]
  3. CYMBALTA [Suspect]
     Dosage: 60 MG, QD
     Route: 048
  4. ABILIFY [Concomitant]
     Dosage: 2 MG, QD
     Route: 048

REACTIONS (1)
  - CEREBROVASCULAR ACCIDENT [None]
